FAERS Safety Report 8403102 (Version 2)
Quarter: 2013Q2

REPORT INFORMATION
  Report Type: Spontaneous
  Country: ES (occurrence: ES)
  Receive Date: 20120213
  Receipt Date: 20130528
  Transmission Date: 20140414
  Serious: Yes (Other)
  Sender: FDA-Public Use
  Company Number: ES-JNJFOC-20120203738

PATIENT
  Age: 52 Year
  Sex: Male

DRUGS (7)
  1. STELARA [Suspect]
     Indication: PSORIASIS
     Route: 058
     Dates: start: 20110308, end: 20111102
  2. ENALAPRIL [Concomitant]
     Indication: HYPERTENSION
  3. PARACETAMOL [Concomitant]
     Indication: PAIN
  4. NAPROXEN [Concomitant]
     Indication: PRODUCT USED FOR UNKNOWN INDICATION
  5. OMEPRAZOLE [Concomitant]
     Indication: GASTROINTESTINAL DISORDER THERAPY
  6. DIAZEPAM [Concomitant]
     Indication: SLEEP DISORDER
  7. METHOTREXATE [Concomitant]
     Indication: PSORIASIS
     Dates: start: 20110916, end: 20110916

REACTIONS (1)
  - Prostate cancer [Not Recovered/Not Resolved]
